FAERS Safety Report 9767531 (Version 2)
Quarter: 2013Q4

REPORT INFORMATION
  Report Type: Spontaneous
  Country: US (occurrence: US)
  Receive Date: 20131217
  Receipt Date: 20131217
  Transmission Date: 20140711
  Serious: No
  Sender: FDA-Public Use
  Company Number: US-GILEAD-2009-0020155

PATIENT
  Age: 37 Year
  Sex: Female
  Weight: 62.6 kg

DRUGS (2)
  1. VIREAD [Suspect]
     Indication: HEPATITIS B
     Route: 048
     Dates: start: 200901, end: 20090130
  2. EPIVIR [Suspect]
     Indication: HEPATITIS B
     Route: 048

REACTIONS (1)
  - Chest pain [Recovered/Resolved]
